FAERS Safety Report 7373074-6 (Version None)
Quarter: 2011Q1

REPORT INFORMATION
  Report Type: 
  Country: None (occurrence: None)
  Receive Date: 20110324
  Receipt Date: 20110318
  Transmission Date: 20110831
  Serious: Yes (Other)
  Sender: FDA-Public Use
  Company Number: CO-PFIZER INC-2011054146

PATIENT
  Sex: Male

DRUGS (3)
  1. ADVIL LIQUI-GELS [Suspect]
     Indication: FEELING OF RELAXATION
  2. ADVIL LIQUI-GELS [Suspect]
     Indication: HEADACHE
     Dosage: 1000 MG DAILY, AS NEEDED
  3. ADVIL LIQUI-GELS [Suspect]
     Indication: POOR QUALITY SLEEP

REACTIONS (2)
  - PARAESTHESIA [None]
  - SEDATION [None]
